FAERS Safety Report 13741243 (Version 3)
Quarter: 2018Q1

REPORT INFORMATION
  Report Type: Report from Study
  Country: US (occurrence: US)
  Receive Date: 20170711
  Receipt Date: 20180215
  Transmission Date: 20180508
  Serious: Yes (Hospitalization, Other)
  Sender: FDA-Public Use
  Company Number: US-AMGEN-USASL2017102515

PATIENT
  Sex: Female

DRUGS (2)
  1. ENBREL [Suspect]
     Active Substance: ETANERCEPT
     Indication: PSORIATIC ARTHROPATHY
     Dosage: UNK
     Route: 065
  2. ENBREL [Suspect]
     Active Substance: ETANERCEPT
     Indication: FIBROMYALGIA
     Dosage: 50 MG, UNK
     Route: 065

REACTIONS (11)
  - Psoriatic arthropathy [Unknown]
  - Injection site pain [Unknown]
  - Varicose vein [Unknown]
  - Contusion [Unknown]
  - Pneumonia [Unknown]
  - Gastric bypass [Unknown]
  - Full blood count decreased [Unknown]
  - Wrong technique in product usage process [Unknown]
  - Blood iron decreased [Unknown]
  - Finger deformity [Unknown]
  - Off label use [Unknown]

NARRATIVE: CASE EVENT DATE: 2009
